FAERS Safety Report 8132701-6 (Version None)
Quarter: 2012Q1

REPORT INFORMATION
  Report Type: 
  Country: None (occurrence: None)
  Receive Date: 20120103
  Receipt Date: 20111114
  Transmission Date: 20120608
  Serious: No
  Sender: FDA-Public Use
  Company Number: AE-2011-003473

PATIENT
  Age: 37 Year
  Sex: Male
  Weight: 105.2345 kg

DRUGS (5)
  1. INCIVEK [Suspect]
     Dosage: 2250 MG (750 MG,1 IN 8 HR),ORAL
     Route: 048
     Dates: start: 20111021
  2. RIBAVIRIN [Concomitant]
  3. COMPAZINE [Concomitant]
  4. DEXILANT (LANSOPRAZOLE) [Concomitant]
  5. PEGASYS [Concomitant]

REACTIONS (3)
  - ANAL PRURITUS [None]
  - ANORECTAL DISCOMFORT [None]
  - HAEMORRHOIDAL HAEMORRHAGE [None]
